FAERS Safety Report 8419491-4 (Version None)
Quarter: 2012Q2

REPORT INFORMATION
  Report Type: 
  Country: None (occurrence: None)
  Receive Date: 20120607
  Receipt Date: 20120601
  Transmission Date: 20120825
  Serious: Yes (Hospitalization, Disabling)
  Sender: FDA-Public Use
  Company Number: JP-B.I. PHARMACEUTICALS,INC./RIDGEFIELD-2012-BP-02578NB

PATIENT
  Sex: Male
  Weight: 63 kg

DRUGS (6)
  1. URINORM [Concomitant]
     Dosage: 25 MG
     Route: 048
  2. ASPIRIN [Suspect]
     Indication: MYOCARDIAL INFARCTION
     Dosage: 100 MG
     Route: 065
  3. CANDESARTAN CILEXETIL [Concomitant]
     Dosage: 8 MG
     Route: 048
  4. MUCOSAL-L [Concomitant]
     Dosage: 45 MG
     Route: 048
  5. PRADAXA [Suspect]
     Indication: ATRIAL FIBRILLATION
     Dosage: 220 MG
     Route: 048
     Dates: start: 20110415, end: 20120202
  6. CRESTOR [Concomitant]
     Dosage: 2.5 MG
     Route: 048

REACTIONS (3)
  - BLOOD PRESSURE INCREASED [None]
  - CEREBRAL HAEMORRHAGE [None]
  - BLINDNESS [None]
